FAERS Safety Report 7873356-5 (Version None)
Quarter: 2011Q4

REPORT INFORMATION
  Report Type: 
  Country: None (occurrence: None)
  Receive Date: 20111012
  Receipt Date: 20101214
  Transmission Date: 20120403
  Serious: Yes (Other)
  Sender: FDA-Public Use
  Company Number: 2010SP064903

PATIENT
  Sex: Male

DRUGS (2)
  1. RADIOTHERAPY [Concomitant]
  2. TEMODAR [Suspect]
     Indication: GLIOBLASTOMA MULTIFORME

REACTIONS (1)
  - PANCYTOPENIA [None]
